FAERS Safety Report 19741313 (Version 1)
Quarter: 2021Q3

REPORT INFORMATION
  Report Type: Spontaneous
  Country: IR (occurrence: IR)
  Receive Date: 20210824
  Receipt Date: 20210824
  Transmission Date: 20211014
  Serious: Yes (Hospitalization, Other)
  Sender: FDA-Public Use
  Company Number: IR-AAVISPHARMA-2021AP000010

PATIENT

DRUGS (7)
  1. CLOBETASOL [Interacting]
     Active Substance: CLOBETASOL
     Indication: ACUTE GENERALISED EXANTHEMATOUS PUSTULOSIS
     Dosage: CREAM
     Route: 061
  2. PREDNISOLONE. [Interacting]
     Active Substance: PREDNISOLONE
     Indication: ACUTE GENERALISED EXANTHEMATOUS PUSTULOSIS
     Route: 048
  3. PREDNISOLONE. [Concomitant]
     Active Substance: PREDNISOLONE
     Indication: RHEUMATOID ARTHRITIS
     Dosage: TABLET
     Route: 048
  4. METHYLPREDNISOLONE. [Interacting]
     Active Substance: METHYLPREDNISOLONE
     Indication: ACUTE GENERALISED EXANTHEMATOUS PUSTULOSIS
     Route: 042
  5. HYDROXYCHLOROQUINE SULFATE. [Suspect]
     Active Substance: HYDROXYCHLOROQUINE SULFATE
     Indication: RHEUMATOID ARTHRITIS
     Dosage: TABLET
     Route: 048
  6. CLOBETASOL [Interacting]
     Active Substance: CLOBETASOL
     Indication: ACUTE GENERALISED EXANTHEMATOUS PUSTULOSIS
     Route: 061
  7. BEPANTHEN UNSPECIFIED [Interacting]
     Active Substance: UNSPECIFIED INGREDIENT
     Indication: ACUTE GENERALISED EXANTHEMATOUS PUSTULOSIS
     Route: 061

REACTIONS (1)
  - Acute generalised exanthematous pustulosis [Recovered/Resolved]
